FAERS Safety Report 5199097-3 (Version None)
Quarter: 2006Q4

REPORT INFORMATION
  Report Type: 
  Country: None (occurrence: None)
  Receive Date: 20060919
  Receipt Date: 20051031
  Transmission Date: 20070319
  Serious: Yes (Other)
  Sender: FDA-Public Use
  Company Number: HQWYE355502NOV05

PATIENT
  Age: 83 Year
  Sex: Female
  Weight: 63.56 kg

DRUGS (4)
  1. ADVIL [Suspect]
     Indication: ARTHRITIS
     Dosage: 2 CAPSULE 1X PER 1 DAY, ORAL
     Route: 048
     Dates: start: 20051029, end: 20051029
  2. SYNTHROID [Concomitant]
  3. LISINOPRIL [Concomitant]
  4. PLAVIX [Concomitant]

REACTIONS (1)
  - PAIN IN EXTREMITY [None]
